FAERS Safety Report 19226946 (Version 2)
Quarter: 2021Q3

REPORT INFORMATION
  Report Type: Report from Study
  Country: CO (occurrence: CO)
  Receive Date: 20210506
  Receipt Date: 20210820
  Transmission Date: 20211014
  Serious: Yes (Other)
  Sender: FDA-Public Use
  Company Number: CO-JNJFOC-20210458753

PATIENT
  Age: 39 Year
  Sex: Female
  Weight: 68 kg

DRUGS (8)
  1. FOLIC ACID. [Concomitant]
     Active Substance: FOLIC ACID
  2. FERROUS SULFATE. [Concomitant]
     Active Substance: FERROUS SULFATE
  3. TRAZODONE [Concomitant]
     Active Substance: TRAZODONE HYDROCHLORIDE
  4. SIMPONI [Suspect]
     Active Substance: GOLIMUMAB
     Indication: ANKYLOSING SPONDYLITIS
     Dosage: LAST APPLICATION 19?APR?2021, 19?JUL2021
     Route: 058
     Dates: start: 20140106
  5. OXYCODONE [Concomitant]
     Active Substance: OXYCODONE
  6. METHADONE [Concomitant]
     Active Substance: METHADONE HYDROCHLORIDE
  7. METHOTREXATE. [Concomitant]
     Active Substance: METHOTREXATE
  8. LEVOTHYROXINE. [Concomitant]
     Active Substance: LEVOTHYROXINE

REACTIONS (6)
  - Patient-device incompatibility [Recovering/Resolving]
  - Procedural pain [Recovering/Resolving]
  - Influenza [Recovering/Resolving]
  - Headache [Recovering/Resolving]
  - Spinal operation [Recovering/Resolving]
  - Hysterectomy [Recovering/Resolving]

NARRATIVE: CASE EVENT DATE: 2021
